FAERS Safety Report 20211633 (Version 2)
Quarter: 2022Q1

REPORT INFORMATION
  Report Type: Spontaneous
  Country: CA (occurrence: CA)
  Receive Date: 20211221
  Receipt Date: 20220103
  Transmission Date: 20220423
  Serious: Yes (Other)
  Sender: FDA-Public Use
  Company Number: CA-SANOFI-00890326

PATIENT
  Age: 38 Year
  Sex: Female

DRUGS (4)
  1. LEMTRADA [Suspect]
     Active Substance: ALEMTUZUMAB
     Indication: Multiple sclerosis
     Dosage: UNK
     Dates: start: 2020, end: 2020
  2. LEMTRADA [Suspect]
     Active Substance: ALEMTUZUMAB
     Dosage: UNK
     Dates: start: 2019, end: 2019
  3. MYRBETRIQ [Concomitant]
     Active Substance: MIRABEGRON
     Indication: Multiple sclerosis
  4. CIPRALEX [Concomitant]
     Active Substance: ESCITALOPRAM OXALATE
     Indication: Multiple sclerosis

REACTIONS (7)
  - Multiple sclerosis relapse [Not Recovered/Not Resolved]
  - Lymphopenia [Not Recovered/Not Resolved]
  - Expanded disability status scale score increased [Not Recovered/Not Resolved]
  - Asthenia [Not Recovered/Not Resolved]
  - Fatigue [Not Recovered/Not Resolved]
  - Balance disorder [Not Recovered/Not Resolved]
  - Fall [Not Recovered/Not Resolved]

NARRATIVE: CASE EVENT DATE: 20210101
